FAERS Safety Report 5057411-3 (Version None)
Quarter: 2006Q2

REPORT INFORMATION
  Report Type: 
  Country: None (occurrence: None)
  Receive Date: 20060622
  Receipt Date: 20050902
  Transmission Date: 20061013
  Serious: Yes (Other)
  Sender: FDA-Public Use
  Company Number: US-JNJFOC-20051000207

PATIENT
  Age: 48 Year
  Sex: Male
  Weight: 90.7194 kg

DRUGS (1)
  1. DURAGESIC-100 [Suspect]
     Indication: INTENTIONAL DRUG MISUSE
     Dosage: ORAL
     Route: 048
     Dates: end: 20050901

REACTIONS (5)
  - ABNORMAL BEHAVIOUR [None]
  - DRUG ABUSER [None]
  - DRUG DEPENDENCE [None]
  - IRRITABILITY [None]
  - WEIGHT DECREASED [None]
